FAERS Safety Report 5292617-X (Version None)
Quarter: 2007Q2

REPORT INFORMATION
  Report Type: 
  Country: None (occurrence: None)
  Receive Date: 20070404
  Receipt Date: 20070326
  Transmission Date: 20071010
  Serious: Yes (Hospitalization)
  Sender: FDA-Public Use
  Company Number: 2006SP002870

PATIENT
  Age: 53 Year
  Sex: Male
  Weight: 75 kg

DRUGS (2)
  1. PEG-INTRON [Suspect]
     Dosage: SEE IMAGE
     Dates: start: 20041213, end: 20050207
  2. PEG-INTRON [Suspect]
     Dosage: SEE IMAGE
     Dates: start: 20050207

REACTIONS (3)
  - BILIARY TRACT DISORDER [None]
  - HEPATIC STEATOSIS [None]
  - LYMPHADENOPATHY [None]
